FAERS Safety Report 6999574-6 (Version None)
Quarter: 2010Q3

REPORT INFORMATION
  Report Type: 
  Country: None (occurrence: None)
  Receive Date: 20100920
  Receipt Date: 20070911
  Transmission Date: 20110219
  Serious: Yes (Other)
  Sender: FDA-Public Use
  Company Number: US-ASTRAZENECA-2006UW23211

PATIENT
  Age: 52 Year
  Sex: Male
  Weight: 127.9 kg

DRUGS (19)
  1. SEROQUEL [Suspect]
     Indication: BIPOLAR DISORDER
     Dosage: 25 MG - 100 MG
     Route: 048
     Dates: start: 20030618
  2. SEROQUEL [Suspect]
     Indication: DEPRESSION
     Dosage: 25 MG - 100 MG
     Route: 048
     Dates: start: 20030618
  3. SEROQUEL [Suspect]
     Route: 048
  4. SEROQUEL [Suspect]
     Route: 048
  5. ABILIFY [Concomitant]
     Dates: start: 20030101
  6. RISPERDAL [Concomitant]
     Dates: start: 20040101
  7. NORTRIPTYLINE HCL [Concomitant]
     Dates: start: 19990101
  8. NORTRIPTYLINE HCL [Concomitant]
     Dosage: 10 MG - 50 MG
     Dates: start: 20000218
  9. TARKA [Concomitant]
     Dosage: 2 / 240 MG - 4/240 MG
     Route: 048
     Dates: start: 20000327
  10. VIOXX [Concomitant]
     Dates: start: 20030325
  11. ZYPREXA [Concomitant]
     Dates: start: 20030101
  12. ZYPREXA [Concomitant]
     Dates: start: 20030725
  13. OXYCODONE HCL [Concomitant]
     Dosage: 7.5 - 5
     Dates: start: 20031113
  14. PROMETHAZINE HCL [Concomitant]
     Dates: start: 20031113
  15. HYDROCODONE [Concomitant]
     Dosage: 5 - 500
     Dates: start: 20031117
  16. NAPROXEN [Concomitant]
     Dates: start: 20031117
  17. DIAZEPAM [Concomitant]
     Dates: start: 20031124
  18. CELEBREX [Concomitant]
     Dates: start: 20040707
  19. XENICAL [Concomitant]
     Dates: start: 20050219

REACTIONS (3)
  - DIABETES MELLITUS [None]
  - DIABETES MELLITUS INADEQUATE CONTROL [None]
  - TYPE 2 DIABETES MELLITUS [None]
